FAERS Safety Report 22659121 (Version 1)
Quarter: 2023Q2

REPORT INFORMATION
  Report Type: Spontaneous
  Country: US (occurrence: None)
  Receive Date: 20230629
  Receipt Date: 20230629
  Transmission Date: 20230721
  Serious: Yes (Disabling)
  Sender: FDA-Public Use
  Company Number: None

PATIENT
  Age: 65 Year
  Sex: Female
  Weight: 61.2 kg

DRUGS (10)
  1. PROLIA [Suspect]
     Active Substance: DENOSUMAB
     Indication: Osteopenia
     Dates: start: 20230613
  2. RINVOQ [Concomitant]
     Active Substance: UPADACITINIB
  3. PREDNISONE [Concomitant]
     Active Substance: PREDNISONE
  4. LEVOTHYROXINE [Concomitant]
     Active Substance: LEVOTHYROXINE
  5. MONTELUKAST [Concomitant]
     Active Substance: MONTELUKAST SODIUM
  6. EZETIMIBE [Concomitant]
     Active Substance: EZETIMIBE
  7. PROGESTERONE [Concomitant]
     Active Substance: PROGESTERONE
  8. estrogen topical cream [Concomitant]
  9. PROLIA [Concomitant]
     Active Substance: DENOSUMAB
  10. Calcium/D3 supplement [Concomitant]

REACTIONS (6)
  - Back pain [None]
  - Arthralgia [None]
  - Pain in jaw [None]
  - Skin burning sensation [None]
  - Sleep disorder [None]
  - Loss of personal independence in daily activities [None]

NARRATIVE: CASE EVENT DATE: 20230621
